FAERS Safety Report 5087677-5 (Version None)
Quarter: 2006Q3

REPORT INFORMATION
  Report Type: 
  Country: None (occurrence: None)
  Receive Date: 20060727
  Receipt Date: 20060404
  Transmission Date: 20061208
  Serious: Yes (Other)
  Sender: FDA-Public Use
  Company Number: 2006047471

PATIENT
  Age: 78 Year
  Sex: Male
  Weight: 70.7611 kg

DRUGS (5)
  1. LYRICA [Suspect]
     Indication: NEUROPATHY
     Dosage: 150 MG (75 MG, 2 IN 1 D),
  2. ACTOS [Concomitant]
  3. LISINOPRIL [Concomitant]
  4. ATIVAN [Concomitant]
  5. FOLIC ACID [Concomitant]

REACTIONS (1)
  - DRUG INEFFECTIVE [None]
